FAERS Safety Report 25111314 (Version 1)
Quarter: 2025Q1

REPORT INFORMATION
  Report Type: Spontaneous
  Country: BG (occurrence: BG)
  Receive Date: 20250324
  Receipt Date: 20250324
  Transmission Date: 20250409
  Serious: Yes (Hospitalization, Other)
  Sender: ROCHE
  Company Number: None

PATIENT
  Age: 31 Year
  Sex: Female

DRUGS (19)
  1. TRASTUZUMAB [Suspect]
     Active Substance: TRASTUZUMAB
     Indication: Breast cancer metastatic
     Route: 042
     Dates: start: 20141114
  2. TRASTUZUMAB [Suspect]
     Active Substance: TRASTUZUMAB
     Route: 042
     Dates: end: 201510
  3. TRASTUZUMAB [Suspect]
     Active Substance: TRASTUZUMAB
     Route: 058
     Dates: start: 202107
  4. TRASTUZUMAB [Suspect]
     Active Substance: TRASTUZUMAB
     Route: 058
     Dates: start: 202308
  5. XGEVA [Suspect]
     Active Substance: DENOSUMAB
     Indication: Metastases to bone
     Route: 058
     Dates: start: 201603
  6. XGEVA [Suspect]
     Active Substance: DENOSUMAB
     Route: 058
     Dates: start: 201706
  7. XGEVA [Suspect]
     Active Substance: DENOSUMAB
     Route: 058
     Dates: start: 20190328
  8. XGEVA [Suspect]
     Active Substance: DENOSUMAB
     Route: 058
     Dates: start: 20190416
  9. XGEVA [Suspect]
     Active Substance: DENOSUMAB
     Route: 058
     Dates: start: 2019
  10. XGEVA [Suspect]
     Active Substance: DENOSUMAB
     Route: 058
     Dates: start: 202107
  11. XGEVA [Suspect]
     Active Substance: DENOSUMAB
     Route: 058
     Dates: start: 202308
  12. PROGESTERONE [Concomitant]
     Active Substance: PROGESTERONE
  13. EPIRUBICIN [Concomitant]
     Active Substance: EPIRUBICIN
     Route: 042
     Dates: start: 2014
  14. CYCLOPHOSPHAMIDE [Concomitant]
     Active Substance: CYCLOPHOSPHAMIDE
     Route: 042
     Dates: start: 2014
  15. ZOLEDRONIC ACID [Concomitant]
     Active Substance: ZOLEDRONIC ACID
     Dosage: 4 MILLIGRAM, QMO
     Route: 042
     Dates: start: 2014
  16. DOCETAXEL [Concomitant]
     Active Substance: DOCETAXEL
     Indication: Breast cancer metastatic
     Route: 042
  17. GOSERELIN [Concomitant]
     Active Substance: GOSERELIN
     Indication: Breast cancer metastatic
     Dosage: 3.6 MILLIGRAM, QMO
     Route: 058
  18. TAMOXIFEN [Concomitant]
     Active Substance: TAMOXIFEN
     Indication: Breast cancer metastatic
     Dosage: 10 MILLIGRAM, BID
     Route: 048
  19. ADO-TRASTUZUMAB EMTANSINE [Concomitant]
     Active Substance: ADO-TRASTUZUMAB EMTANSINE

REACTIONS (5)
  - COVID-19 [Unknown]
  - Neutropenia [Unknown]
  - Metastases to central nervous system [Unknown]
  - Memory impairment [Unknown]
  - Haematotoxicity [Unknown]

NARRATIVE: CASE EVENT DATE: 20170601
